FAERS Safety Report 8670875 (Version 2)
Quarter: 2013Q3

REPORT INFORMATION
  Report Type: Spontaneous
  Country: US (occurrence: US)
  Receive Date: 20120718
  Receipt Date: 20130802
  Transmission Date: 20140515
  Serious: No
  Sender: FDA-Public Use
  Company Number: US-BRISTOL-MYERS SQUIBB COMPANY-16298663

PATIENT
  Age: 68 Year
  Sex: Male

DRUGS (1)
  1. COUMADIN TABS 2.5 MG [Suspect]
     Indication: ATRIAL FIBRILLATION
     Dosage: AVERAGE DOSE PER DAY:6.25MG
     Route: 048
     Dates: start: 20071201

REACTIONS (1)
  - International normalised ratio abnormal [Unknown]
